FAERS Safety Report 13946080 (Version 2)
Quarter: 2019Q4

REPORT INFORMATION
  Report Type: Spontaneous
  Country: US (occurrence: US)
  Receive Date: 20170907
  Receipt Date: 20191018
  Transmission Date: 20200122
  Serious: Yes (Other)
  Sender: FDA-Public Use
  Company Number: US-PFIZER INC-2017386237

PATIENT
  Age: 60 Year
  Sex: Male

DRUGS (8)
  1. OXYCONTIN [Concomitant]
     Active Substance: OXYCODONE HYDROCHLORIDE
     Dosage: UNK
     Dates: start: 2001, end: 2016
  2. VIAGRA [Suspect]
     Active Substance: SILDENAFIL CITRATE
     Indication: ERECTILE DYSFUNCTION
     Dosage: UNK (1-2 WEEK)
     Route: 048
     Dates: start: 20071120, end: 20090716
  3. OXYCODONE [Concomitant]
     Active Substance: OXYCODONE
     Dosage: UNK
     Dates: start: 2001, end: 2016
  4. SUBOXONE [Concomitant]
     Active Substance: BUPRENORPHINE HYDROCHLORIDE\NALOXONE HYDROCHLORIDE
     Dosage: UNK
     Dates: start: 2016, end: 2018
  5. PREDNISONE. [Concomitant]
     Active Substance: PREDNISONE
     Indication: INFLAMMATION
     Dosage: UNK
     Dates: start: 20120410, end: 2018
  6. TRAMADOL. [Concomitant]
     Active Substance: TRAMADOL
     Indication: PAIN
     Dosage: UNK
     Dates: start: 2018, end: 2018
  7. LEVOTHYROXINE. [Concomitant]
     Active Substance: LEVOTHYROXINE
     Indication: ENDOCRINE DISORDER
     Dosage: UNK
     Dates: start: 20120412, end: 2018
  8. SUBOXONE [Concomitant]
     Active Substance: BUPRENORPHINE HYDROCHLORIDE\NALOXONE HYDROCHLORIDE
     Indication: DRUG DEPENDENCE
     Dosage: UNK
     Dates: start: 20160830, end: 2018

REACTIONS (1)
  - Malignant melanoma [Unknown]

NARRATIVE: CASE EVENT DATE: 20081030
